FAERS Safety Report 13740726 (Version 1)
Quarter: 2017Q3

REPORT INFORMATION
  Report Type: Report from Study
  Country: FR (occurrence: FR)
  Receive Date: 20170711
  Receipt Date: 20170711
  Transmission Date: 20171127
  Serious: Yes (Other)
  Sender: FDA-Public Use
  Company Number: FR-AMGEN-FRASP2016156759

PATIENT
  Age: 57 Year
  Sex: Female
  Weight: 55 kg

DRUGS (7)
  1. CARFILZOMIB [Suspect]
     Active Substance: CARFILZOMIB
     Indication: PLASMA CELL MYELOMA
     Dosage: 42 MG, ON DAYS 1, 2, 8, 9, 15 AND 16
     Route: 042
     Dates: start: 20160620, end: 2016
  2. REVLIMID [Concomitant]
     Active Substance: LENALIDOMIDE
     Dosage: 25 MG, 14 DAYS/28
     Route: 048
     Dates: start: 20160620, end: 2016
  3. CARFILZOMIB [Suspect]
     Active Substance: CARFILZOMIB
     Dosage: 42 MG, ON DAYS 1, 2, 8, 9, 15 AND 16
     Route: 042
     Dates: start: 20161017, end: 2016
  4. DEXAMETHASONE. [Concomitant]
     Active Substance: DEXAMETHASONE
     Dosage: 40 MG, QWK
     Route: 048
     Dates: start: 20160620, end: 2016
  5. CARFILZOMIB [Suspect]
     Active Substance: CARFILZOMIB
     Dosage: 42 MG, ON DAYS 1, 2, 8, 9, 15 AND 16
     Route: 042
     Dates: start: 20160718, end: 2016
  6. CARFILZOMIB [Suspect]
     Active Substance: CARFILZOMIB
     Dosage: 42 MG, ON DAYS 1, 2, 8, 9, 15 AND 16
     Route: 042
     Dates: start: 20160919, end: 2016
  7. CARFILZOMIB [Suspect]
     Active Substance: CARFILZOMIB
     Dosage: 42 MG, ON DAYS 1, 2, 8, 9, 15 AND 16
     Route: 042
     Dates: start: 20160816, end: 2016

REACTIONS (1)
  - Cardiac failure chronic [Not Recovered/Not Resolved]

NARRATIVE: CASE EVENT DATE: 20161021
